FAERS Safety Report 6550948-7 (Version None)
Quarter: 2010Q1

REPORT INFORMATION
  Report Type: 
  Country: None (occurrence: None)
  Receive Date: 20100125
  Receipt Date: 20091204
  Transmission Date: 20100710
  Serious: Yes (Hospitalization, Other)
  Sender: FDA-Public Use
  Company Number: US-BAYER-200941134GPV

PATIENT
  Age: 81 Year
  Sex: Female

DRUGS (10)
  1. CLOPIDOGREL [Suspect]
     Indication: ANTIPLATELET THERAPY
     Route: 065
  2. FLUVASTATIN [Suspect]
     Route: 065
  3. FLUVASTATIN [Suspect]
     Route: 065
  4. IRBESARTAN [Suspect]
     Route: 065
  5. ASPIRIN [Suspect]
     Indication: DRUG USE FOR UNKNOWN INDICATION
     Route: 065
  6. INDAPAMIDE [Suspect]
     Indication: DRUG USE FOR UNKNOWN INDICATION
     Route: 065
  7. ALENDRONATE SODIUM [Suspect]
     Indication: DRUG USE FOR UNKNOWN INDICATION
     Route: 065
  8. FOLIC ACID [Suspect]
     Indication: DRUG USE FOR UNKNOWN INDICATION
     Route: 065
  9. CARVEDILOL [Concomitant]
     Indication: MALAISE
     Dosage: TOTAL DAILY DOSE: 13 MG
     Route: 065
  10. THALLIUM [Concomitant]
     Indication: CARDIAC STRESS TEST

REACTIONS (2)
  - CHOLESTATIC LIVER INJURY [None]
  - HEPATOCELLULAR INJURY [None]
